FAERS Safety Report 7982311-6 (Version None)
Quarter: 2011Q4

REPORT INFORMATION
  Report Type: 
  Country: None (occurrence: None)
  Receive Date: 20111215
  Receipt Date: 20111206
  Transmission Date: 20120403
  Serious: Yes (Other)
  Sender: FDA-Public Use
  Company Number: PHEH2011US011027

PATIENT
  Sex: Female

DRUGS (9)
  1. BUPROPION HCL [Concomitant]
  2. FENTANYL [Concomitant]
  3. FOLIC ACID [Concomitant]
     Dosage: 1 MG, UNK
  4. EXJADE [Suspect]
     Dosage: 1500 MG, DAILY
  5. SERTRALINE HYDROCHLORIDE [Concomitant]
     Dosage: 200 MG, UNK
  6. MULTI-VITAMIN [Concomitant]
  7. SEROQUEL [Concomitant]
  8. ARANESP [Concomitant]
  9. HYDROMORPHONE HCL [Concomitant]
     Dosage: 4 MG, UNK

REACTIONS (3)
  - NERVOUSNESS [None]
  - HAEMOGLOBIN DECREASED [None]
  - SKIN ULCER HAEMORRHAGE [None]
